FAERS Safety Report 21647910 (Version 1)
Quarter: 2022Q4

REPORT INFORMATION
  Report Type: Spontaneous
  Country: US (occurrence: US)
  Receive Date: 20221128
  Receipt Date: 20221128
  Transmission Date: 20230113
  Serious: Yes (Other)
  Sender: FDA-Public Use
  Company Number: US-BRISTOL-MYERS SQUIBB COMPANY-2022-142154

PATIENT
  Age: 75 Year
  Sex: Male

DRUGS (8)
  1. REVLIMID [Suspect]
     Active Substance: LENALIDOMIDE
     Indication: Plasma cell myeloma
     Route: 048
     Dates: start: 20211207
  2. ASPIRIN [Concomitant]
     Active Substance: ASPIRIN
     Dosage: LOW DOSE
  3. TRIAMCINOLONE [Concomitant]
     Active Substance: TRIAMCINOLONE
  4. AMLODIPINE BESYLATE [Concomitant]
     Active Substance: AMLODIPINE BESYLATE
  5. JANUMET XR [Concomitant]
     Active Substance: METFORMIN HYDROCHLORIDE\SITAGLIPTIN PHOSPHATE
  6. LISINOPRIL [Concomitant]
     Active Substance: LISINOPRIL
  7. SIMVASTATIN [Concomitant]
     Active Substance: SIMVASTATIN
  8. ERGOCALCIFEROL [Concomitant]
     Active Substance: ERGOCALCIFEROL
     Dosage: 3400 UNIT

REACTIONS (2)
  - Rash [Unknown]
  - Contusion [Unknown]

NARRATIVE: CASE EVENT DATE: 20221101
